FAERS Safety Report 16835271 (Version 1)
Quarter: 2019Q3

REPORT INFORMATION
  Report Type: Spontaneous
  Country: PL (occurrence: PL)
  Receive Date: 20190920
  Receipt Date: 20190920
  Transmission Date: 20191005
  Serious: Yes (Death, Other)
  Sender: FDA-Public Use
  Company Number: PL-GILEAD-2019-0429777

PATIENT
  Sex: Female

DRUGS (1)
  1. GENVOYA [Suspect]
     Active Substance: COBICISTAT\ELVITEGRAVIR\EMTRICITABINE\TENOFOVIR ALAFENAMIDE FUMARATE
     Indication: HIV INFECTION
     Dosage: UNK
     Route: 065
     Dates: start: 201804, end: 201808

REACTIONS (10)
  - Asthenia [Unknown]
  - Death [Fatal]
  - Pulmonary hilar enlargement [Unknown]
  - Leukopenia [Unknown]
  - Anaemia [Unknown]
  - Lymphadenopathy [Unknown]
  - Hodgkin^s disease [Unknown]
  - Pyrexia [Unknown]
  - Splenic lesion [Unknown]
  - Hepatic lesion [Unknown]

NARRATIVE: CASE EVENT DATE: 201810
